FAERS Safety Report 7300748-5 (Version None)
Quarter: 2011Q1

REPORT INFORMATION
  Report Type: 
  Country: None (occurrence: None)
  Receive Date: 20110218
  Receipt Date: 20100416
  Transmission Date: 20110831
  Serious: Yes (Hospitalization)
  Sender: FDA-Public Use
  Company Number: US-RANBAXY-2010US-33714

PATIENT

DRUGS (20)
  1. MAALOX [Concomitant]
     Indication: DYSPEPSIA
     Dosage: UNK, UNK
     Route: 065
  2. CELLCEPT [Concomitant]
     Indication: PROPHYLAXIS AGAINST TRANSPLANT REJECTION
     Dosage: UNK, UNK
     Route: 065
  3. SENOKOT [Concomitant]
     Indication: CONSTIPATION PROPHYLAXIS
     Dosage: UNK, UNK
     Route: 065
  4. ACYCLOVIR (PLACEBO) [Suspect]
     Dosage: 400 MG, BID
     Route: 048
     Dates: start: 20071005
  5. BACTRIM DS [Concomitant]
     Indication: ANTIBIOTIC PROPHYLAXIS
     Dosage: UNK, UNK
     Route: 065
  6. HEPARIN [Concomitant]
     Indication: THROMBOSIS PROPHYLAXIS
     Dosage: UNK, UNK
     Route: 065
  7. SPIRONOLACTONE [Concomitant]
     Indication: ASCITES
     Dosage: UNK, UNK
     Route: 065
  8. ACYCLOVIR (PLACEBO) [Suspect]
     Indication: ANTIVIRAL PROPHYLAXIS
     Dosage: 400 MG, BID
     Route: 048
     Dates: start: 20070911, end: 20070928
  9. MARIBAVIR (PLACEBO) [Suspect]
     Indication: ANTIVIRAL PROPHYLAXIS
     Dosage: 100 MG, BID
     Route: 048
     Dates: start: 20070911, end: 20070928
  10. LASIX [Concomitant]
     Indication: OEDEMA PERIPHERAL
  11. LOPRESSOR [Concomitant]
     Indication: HYPERTENSION
     Dosage: UNK, UNK
     Route: 065
  12. GANCICLOVIR [Suspect]
     Dosage: 2 500 MG CAPSULES, TID
     Route: 048
     Dates: start: 20071005
  13. PROGRAF [Suspect]
     Indication: PROPHYLAXIS AGAINST TRANSPLANT REJECTION
     Dosage: UNK, UNK
     Route: 065
  14. CYCLOSPORINE [Concomitant]
     Indication: PROPHYLAXIS AGAINST TRANSPLANT REJECTION
     Dosage: UNK, UNK
     Route: 065
  15. PREDNISONE [Concomitant]
     Indication: PROPHYLAXIS AGAINST TRANSPLANT REJECTION
     Dosage: UNK, UNK
     Route: 065
  16. GANCICLOVIR [Suspect]
     Indication: ANTIVIRAL PROPHYLAXIS
     Dosage: 500 MG CAPSULES, TID
     Route: 048
     Dates: start: 20070911, end: 20070928
  17. MARIBAVIR (PLACEBO) [Suspect]
     Dosage: 100 MG, BID
     Route: 048
     Dates: start: 20071005
  18. LASIX [Concomitant]
     Indication: ASCITES
     Dosage: UNK, UNK
     Route: 065
  19. NYSTATIN [Concomitant]
     Indication: ORAL CANDIDIASIS
     Dosage: UNK, UNK
     Route: 065
  20. AMLODIPINE [Concomitant]
     Indication: HYPERTENSION
     Dosage: UNK, UNK
     Route: 065

REACTIONS (4)
  - DELIRIUM [None]
  - TREMOR [None]
  - LEUKOCYTOSIS [None]
  - DIARRHOEA [None]
